FAERS Safety Report 19272469 (Version 1)
Quarter: 2021Q2

REPORT INFORMATION
  Report Type: Spontaneous
  Country: FR (occurrence: FR)
  Receive Date: 20210518
  Receipt Date: 20210518
  Transmission Date: 20210717
  Serious: Yes (Hospitalization)
  Sender: FDA-Public Use
  Company Number: NVSC2021FR104619

PATIENT
  Age: 84 Year
  Sex: Male
  Weight: 53.2 kg

DRUGS (2)
  1. GENTAMICINE [Suspect]
     Active Substance: GENTAMICIN
     Indication: BETA HAEMOLYTIC STREPTOCOCCAL INFECTION
     Dosage: 5 MG/KG, QD
     Route: 042
     Dates: start: 20210402, end: 20210405
  2. AMOXICILLINE [Suspect]
     Active Substance: AMOXICILLIN
     Indication: BETA HAEMOLYTIC STREPTOCOCCAL INFECTION
     Dosage: 12 G, QD (12G/24H)
     Route: 042
     Dates: start: 20210402, end: 20210405

REACTIONS (2)
  - Acute kidney injury [Recovered/Resolved]
  - Crystalluria [Recovered/Resolved]

NARRATIVE: CASE EVENT DATE: 20210403
